FAERS Safety Report 6708258-0 (Version None)
Quarter: 2010Q2

REPORT INFORMATION
  Report Type: 
  Country: None (occurrence: None)
  Receive Date: 20100503
  Receipt Date: 20090721
  Transmission Date: 20101027
  Serious: No
  Sender: FDA-Public Use
  Company Number: US-ASTRAZENECA-2009UW20912

PATIENT
  Age: 40 Year
  Sex: Female

DRUGS (2)
  1. NEXIUM [Suspect]
     Indication: GASTROOESOPHAGEAL REFLUX DISEASE
     Route: 048
  2. AMOXICILLIN [Concomitant]
     Indication: POSTNASAL DRIP

REACTIONS (1)
  - OROPHARYNGEAL PAIN [None]
